FAERS Safety Report 18473510 (Version 2)
Quarter: 2020Q4

REPORT INFORMATION
  Report Type: Spontaneous
  Country: IT (occurrence: IT)
  Receive Date: 20201106
  Receipt Date: 20201118
  Transmission Date: 20210114
  Serious: Yes (Disabling, Other)
  Sender: FDA-Public Use
  Company Number: IT-PFIZER INC-2020430590

PATIENT
  Age: 69 Year
  Sex: Female

DRUGS (8)
  1. TERAXANS [Concomitant]
     Active Substance: INDAPAMIDE\PERINDOPRIL ARGININE
     Dosage: 1 DF, ONCE DIALY (8 AM)
  2. CARDICOR [Concomitant]
     Active Substance: BISOPROLOL
     Dosage: 2.5 MG, ONCE DAILY (1 PM)
  3. PROCAPTAN [Concomitant]
     Active Substance: PERINDOPRIL ERBUMINE
     Dosage: 1 DF, ONCE DAIL (8 AM)
  4. TOUJEO [Concomitant]
     Active Substance: INSULIN GLARGINE
     Dosage: UNK, ONCE DAILY (10 PM)
  5. APIDRA [Concomitant]
     Active Substance: INSULIN GLULISINE
     Dosage: 1 DF, THRICE DAILY (8, 12, AND  20 O^CLOCK)
  6. METFORAL [Concomitant]
     Active Substance: METFORMIN HYDROCHLORIDE
     Dosage: 850 MG, TWICE DAILY (AT 12 AND 20 O^CLOCK)
  7. IBRANCE [Suspect]
     Active Substance: PALBOCICLIB
     Indication: BREAST CANCER METASTATIC
     Dosage: 125 MG, CYCLIC (DAILY FOR DAYS 1 TO 21 EVERY 28 DAYS)
     Route: 048
     Dates: start: 20200724, end: 2020
  8. IBRANCE [Suspect]
     Active Substance: PALBOCICLIB
     Dosage: 100 MG, CYCLIC (DAILY FOR DAYS 1 TO 21 EVERY 28 DAYS)
     Route: 048
     Dates: start: 2020

REACTIONS (11)
  - Ocular toxicity [Recovering/Resolving]
  - Cataract [Recovering/Resolving]
  - Xerophthalmia [Recovering/Resolving]
  - Myelosuppression [Unknown]
  - Maculopathy [Recovering/Resolving]
  - Eye pain [Recovering/Resolving]
  - Foreign body sensation in eyes [Recovering/Resolving]
  - Visual impairment [Recovering/Resolving]
  - Lacrimation disorder [Recovering/Resolving]
  - Condition aggravated [Recovering/Resolving]
  - Dry eye [Recovering/Resolving]

NARRATIVE: CASE EVENT DATE: 2020
